FAERS Safety Report 5041787-7 (Version None)
Quarter: 2006Q2

REPORT INFORMATION
  Report Type: 
  Country: None (occurrence: None)
  Receive Date: 20060630
  Receipt Date: 20060621
  Transmission Date: 20061013
  Serious: Yes (Hospitalization, Other)
  Sender: FDA-Public Use
  Company Number: 2006078442

PATIENT
  Age: 76 Year
  Sex: Male
  Weight: 87.9978 kg

DRUGS (13)
  1. CADUET [Suspect]
     Dosage: 5/10MG (1 IN 1 D) 6 MONTHS AGO
  2. CARDURA [Suspect]
     Dosage: 2 MG (2 MG, 1 IN 1 D), ABOUT A YEAR AGO
  3. PAXIL [Concomitant]
  4. MORPHINE SULFATE [Concomitant]
  5. PLAVIX [Concomitant]
  6. LASIX [Concomitant]
  7. LISINOPRIL [Concomitant]
  8. ATENOLOL [Concomitant]
  9. ASPIRIN [Concomitant]
  10. INSULIN [Concomitant]
  11. INSULIN LENTE (INSULIN ZINC SUSPENSION) [Concomitant]
  12. VITAMN B (VITAMIN B) [Concomitant]
  13. FOLIC ACID [Concomitant]

REACTIONS (10)
  - BLOOD GLUCOSE INCREASED [None]
  - CARDIAC FAILURE CONGESTIVE [None]
  - CARDIAC PACEMAKER INSERTION [None]
  - KIDNEY INFECTION [None]
  - PAIN IN EXTREMITY [None]
  - PNEUMONIA [None]
  - TOE AMPUTATION [None]
  - URINARY TRACT INFECTION [None]
  - VASCULAR BYPASS GRAFT [None]
  - WHITE BLOOD CELL COUNT INCREASED [None]
